FAERS Safety Report 4654807-6 (Version None)
Quarter: 2005Q2

REPORT INFORMATION
  Report Type: 
  Country: None (occurrence: None)
  Receive Date: 20050506
  Receipt Date: 20050429
  Transmission Date: 20051028
  Serious: Yes (Hospitalization)
  Sender: FDA-Public Use
  Company Number: IE-ROCHE-403678

PATIENT
  Age: 56 Year
  Sex: Female

DRUGS (1)
  1. XENICAL [Suspect]
     Indication: OBESITY
     Route: 048
     Dates: start: 20040615

REACTIONS (3)
  - HAEMATURIA [None]
  - HAEMOPTYSIS [None]
  - VITAMIN K DEFICIENCY [None]
